FAERS Safety Report 5212866-6 (Version None)
Quarter: 2007Q1

REPORT INFORMATION
  Report Type: 
  Country: None (occurrence: None)
  Receive Date: 20070119
  Receipt Date: 20070111
  Transmission Date: 20070707
  Serious: Yes (Other)
  Sender: FDA-Public Use
  Company Number: ES-JNJFOC-20061203046

PATIENT
  Age: 50 Year
  Sex: Male
  Weight: 72 kg

DRUGS (3)
  1. REMICADE [Suspect]
     Indication: ANKYLOSING SPONDYLITIS
     Dosage: (5 MG/KG)
     Route: 042
  2. STEROIDS [Concomitant]
     Dosage: LOW DOSE
     Route: 065
  3. NSAIDS [Concomitant]
     Route: 065

REACTIONS (1)
  - MALIGNANT MELANOMA [None]
